FAERS Safety Report 6137546-4 (Version None)
Quarter: 2009Q1

REPORT INFORMATION
  Report Type: 
  Country: None (occurrence: None)
  Receive Date: 20090327
  Receipt Date: 20090312
  Transmission Date: 20090719
  Serious: Yes (Hospitalization)
  Sender: FDA-Public Use
  Company Number: SPI200900097

PATIENT
  Sex: Female

DRUGS (1)
  1. AMITIZA (LIJBIPROSTONE) CAPSULE [Suspect]
     Dates: start: 20090101

REACTIONS (1)
  - COLITIS ISCHAEMIC [None]
